FAERS Safety Report 21079205 (Version 1)
Quarter: 2022Q3

REPORT INFORMATION
  Report Type: Report from Study
  Country: US (occurrence: None)
  Receive Date: 20220714
  Receipt Date: 20220714
  Transmission Date: 20221026
  Serious: Yes (Other)
  Sender: FDA-Public Use
  Company Number: 2022A246343

PATIENT
  Sex: Male
  Weight: 80 kg

DRUGS (1)
  1. TAGRISSO [Suspect]
     Active Substance: OSIMERTINIB
     Route: 048
     Dates: start: 20210902, end: 20211010

REACTIONS (2)
  - Drug intolerance [Unknown]
  - Disease progression [Unknown]
